FAERS Safety Report 25969470 (Version 1)
Quarter: 2025Q4

REPORT INFORMATION
  Report Type: Spontaneous
  Country: US (occurrence: None)
  Receive Date: 20251028
  Receipt Date: 20251028
  Transmission Date: 20260118
  Serious: No
  Sender: FDA-CTU
  Company Number: None

PATIENT

DRUGS (1)
  1. ZEPBOUND [Suspect]
     Active Substance: TIRZEPATIDE
     Dosage: OTHER STRENGTH : UNSPECIFIED;?

REACTIONS (1)
  - Therapeutic response changed [None]

NARRATIVE: CASE EVENT DATE: 20251027
